FAERS Safety Report 6133396-3 (Version None)
Quarter: 2009Q1

REPORT INFORMATION
  Report Type: 
  Country: None (occurrence: None)
  Receive Date: 20090326
  Receipt Date: 20090318
  Transmission Date: 20090719
  Serious: Yes (Other)
  Sender: FDA-Public Use
  Company Number: PHHY2009JP10014

PATIENT
  Age: 16 Year
  Sex: Male

DRUGS (5)
  1. CYCLOSPORINE [Suspect]
     Indication: BONE MARROW TRANSPLANT
     Dosage: 3 MG/KG/DAY
  2. METHOTREXATE [Concomitant]
     Indication: BONE MARROW TRANSPLANT
     Dosage: 10 MG/M^2
  3. METHOTREXATE [Concomitant]
     Dosage: 7 MG/M^2
  4. CYTARABINE [Concomitant]
     Indication: BONE MARROW TRANSPLANT
     Dosage: 4000 MG/M^2
  5. CYCLOPHOSPHAMIDE [Concomitant]
     Indication: BONE MARROW TRANSPLANT
     Dosage: 60 MG/KG

REACTIONS (3)
  - COMPLICATIONS OF BONE MARROW TRANSPLANT [None]
  - LIVER DISORDER [None]
  - SWOLLEN TONGUE [None]
